FAERS Safety Report 14385369 (Version 2)
Quarter: 2018Q1

REPORT INFORMATION
  Report Type: Spontaneous
  Country: US (occurrence: US)
  Receive Date: 20180115
  Receipt Date: 20180115
  Transmission Date: 20180509
  Serious: Yes (Other)
  Sender: FDA-Public Use
  Company Number: US-SA-2016SA229309

PATIENT
  Age: 52 Year
  Sex: Female
  Weight: 68.03 kg

DRUGS (2)
  1. TAXOTERE [Suspect]
     Active Substance: DOCETAXEL
     Indication: INVASIVE DUCTAL BREAST CARCINOMA
     Dosage: DOSAGE: 120MG/135MG
     Route: 051
     Dates: start: 200511, end: 200511
  2. TAXOTERE [Suspect]
     Active Substance: DOCETAXEL
     Indication: INVASIVE DUCTAL BREAST CARCINOMA
     Dosage: DOSAGE: 120MG/135MG
     Route: 051
     Dates: start: 200909, end: 200909

REACTIONS (9)
  - Emotional distress [Unknown]
  - Impaired quality of life [Unknown]
  - Injury [Unknown]
  - Anxiety [Unknown]
  - Alopecia [Not Recovered/Not Resolved]
  - Hair colour changes [Unknown]
  - Pain [Unknown]
  - Discomfort [Unknown]
  - Hair texture abnormal [Unknown]
